FAERS Safety Report 8943452 (Version 1)
Quarter: 2012Q4

REPORT INFORMATION
  Report Type: 
  Country: FR (occurrence: FR)
  Receive Date: 20121204
  Receipt Date: 20121204
  Transmission Date: 20130627
  Serious: Yes (Other)
  Sender: FDA-Public Use
  Company Number: PHHY2012FR109270

PATIENT
  Age: 73 Year
  Sex: Male

DRUGS (1)
  1. VALPROIC ACID [Suspect]
     Indication: MYOCLONUS
     Dosage: 1 g, daily

REACTIONS (12)
  - Gait disturbance [Not Recovered/Not Resolved]
  - Cognitive disorder [Unknown]
  - Abnormal behaviour [Unknown]
  - Attention deficit/hyperactivity disorder [Unknown]
  - Hypoperfusion [Unknown]
  - Cerebellar atrophy [Unknown]
  - Dopamine dysregulation syndrome [Unknown]
  - Freezing phenomenon [Unknown]
  - Hypertonia [Unknown]
  - Coordination abnormal [Unknown]
  - Abasia [Unknown]
  - Akinesia [Unknown]
